FAERS Safety Report 24190580 (Version 1)
Quarter: 2024Q3

REPORT INFORMATION
  Report Type: Spontaneous
  Country: US (occurrence: US)
  Receive Date: 20240808
  Receipt Date: 20240808
  Transmission Date: 20241017
  Serious: No
  Sender: AMGEN
  Company Number: US-AMGEN-USASP2024157120

PATIENT
  Sex: Female
  Weight: 120 kg

DRUGS (2)
  1. XGEVA [Suspect]
     Active Substance: DENOSUMAB
     Indication: Metastases to bone
     Dosage: 120 MILLIGRAM/1.7 ML (70 MG/ML)
     Route: 065
  2. XGEVA [Suspect]
     Active Substance: DENOSUMAB
     Indication: Breast cancer

REACTIONS (2)
  - Gingival disorder [Not Recovered/Not Resolved]
  - Tooth disorder [Not Recovered/Not Resolved]
